FAERS Safety Report 4667385-2 (Version None)
Quarter: 2005Q2

REPORT INFORMATION
  Report Type: 
  Country: None (occurrence: None)
  Receive Date: 20050520
  Receipt Date: 20050330
  Transmission Date: 20051028
  Serious: Yes (Life-Threatening, Hospitalization, Other)
  Sender: FDA-Public Use
  Company Number: FR-ABBOTT-05P-056-0295564-00

PATIENT
  Age: 20 Year
  Sex: Male

DRUGS (7)
  1. DEPAKENE [Suspect]
     Indication: EPILEPSY
     Route: 048
     Dates: start: 20041124, end: 20050221
  2. DEPAKENE [Suspect]
     Route: 048
     Dates: start: 20041123, end: 20041124
  3. OXCARBAZEPINE [Suspect]
     Indication: EPILEPSY
     Route: 048
     Dates: start: 20040214, end: 20050221
  4. PHENOBARBITAL [Concomitant]
     Indication: DRUG USE FOR UNKNOWN INDICATION
     Route: 065
     Dates: start: 20041120, end: 20041204
  5. GABAPENTIN [Concomitant]
     Indication: DRUG USE FOR UNKNOWN INDICATION
     Route: 065
     Dates: start: 20041204, end: 20050214
  6. CLONAZEPAM [Concomitant]
     Indication: CONVULSION
  7. LEVETIRACETAM [Concomitant]
     Indication: CONVULSION

REACTIONS (15)
  - ACUTE RESPIRATORY DISTRESS SYNDROME [None]
  - ALOPECIA [None]
  - ASTHENIA [None]
  - BLOOD CREATINE PHOSPHOKINASE INCREASED [None]
  - BLOOD CREATINE PHOSPHOKINASE MB INCREASED [None]
  - C-REACTIVE PROTEIN INCREASED [None]
  - DERMATITIS BULLOUS [None]
  - DYSPHAGIA [None]
  - HEPATIC ENZYME INCREASED [None]
  - IRIS ADHESIONS [None]
  - LEUKOPENIA [None]
  - LYMPHADENOPATHY [None]
  - PYREXIA [None]
  - THROMBOCYTOPENIA [None]
  - TOXIC EPIDERMAL NECROLYSIS [None]
